FAERS Safety Report 9125927 (Version 1)
Quarter: 2013Q1

REPORT INFORMATION
  Report Type: Spontaneous
  Country: US (occurrence: US)
  Receive Date: 20130117
  Receipt Date: 20130117
  Transmission Date: 20140127
  Serious: No
  Sender: FDA-Public Use
  Company Number: US-TEVA-381069USA

PATIENT
  Age: 33 Year
  Sex: Female
  Weight: 59.93 kg

DRUGS (5)
  1. PLAN B ONE-STEP [Suspect]
     Indication: POST COITAL CONTRACEPTION
     Dosage: 1.5 MILLIGRAM DAILY;
     Route: 048
     Dates: start: 20130111, end: 20130111
  2. ROBITUSSIN [Concomitant]
     Indication: COUGH
     Route: 048
     Dates: start: 20130111
  3. XANAX [Concomitant]
     Indication: ANXIETY
     Route: 048
     Dates: start: 20130111
  4. ZITHROMAX [Concomitant]
     Indication: COUGH
     Dosage: 500 MILLIGRAM DAILY;
     Route: 048
     Dates: start: 20130111
  5. ZITHROMAX [Concomitant]
     Indication: INFLUENZA

REACTIONS (2)
  - Hyperhidrosis [Not Recovered/Not Resolved]
  - Hypoaesthesia [Not Recovered/Not Resolved]
